FAERS Safety Report 4848053-0 (Version None)
Quarter: 2005Q4

REPORT INFORMATION
  Report Type: 
  Country: None (occurrence: None)
  Receive Date: 20051208
  Receipt Date: 20051118
  Transmission Date: 20060501
  Serious: Yes (Other)
  Sender: FDA-Public Use
  Company Number: CA-AMGEN-US158471

PATIENT
  Age: 60 Year
  Sex: Male

DRUGS (3)
  1. ARANESP [Suspect]
     Indication: DIALYSIS
     Route: 042
     Dates: start: 20050819, end: 20051116
  2. INH [Suspect]
  3. EPREX [Suspect]

REACTIONS (1)
  - APLASIA PURE RED CELL [None]
